FAERS Safety Report 6945307-9 (Version None)
Quarter: 2010Q3

REPORT INFORMATION
  Report Type: 
  Country: None (occurrence: None)
  Receive Date: 20100827
  Receipt Date: 20100817
  Transmission Date: 20110219
  Serious: Yes (Hospitalization, Other)
  Sender: FDA-Public Use
  Company Number: US-ROCHE-353435

PATIENT
  Sex: Male
  Weight: 98.9 kg

DRUGS (16)
  1. ACCUTANE [Suspect]
     Indication: ACNE
     Route: 048
     Dates: start: 20000101
  2. ACCUTANE [Suspect]
     Route: 048
     Dates: start: 20000515
  3. ACCUTANE [Suspect]
     Route: 048
     Dates: start: 20000717
  4. ACCUTANE [Suspect]
     Route: 048
  5. ACCUTANE [Suspect]
     Route: 048
     Dates: end: 20010101
  6. LIPITOR [Concomitant]
  7. XANAX [Concomitant]
  8. PRILOSEC [Concomitant]
  9. RELAFEN [Concomitant]
  10. PREDNISONE [Concomitant]
  11. PREVACID [Concomitant]
     Route: 048
     Dates: start: 20000112
  12. BUSPAR [Concomitant]
     Indication: ANXIETY
     Dosage: DOSAGE EGIMEN REPORTED AS: VARIES.
     Route: 048
     Dates: start: 20000124
  13. TYLENOL PM [Concomitant]
     Indication: INSOMNIA
     Route: 048
  14. RITALIN [Concomitant]
     Route: 048
     Dates: start: 20000112
  15. PAMINE [Concomitant]
     Route: 048
     Dates: start: 20000101
  16. IMITREX [Concomitant]
     Indication: MIGRAINE

REACTIONS (43)
  - ABDOMINAL DISCOMFORT [None]
  - ANGINA UNSTABLE [None]
  - ANXIETY [None]
  - ARTERIOSCLEROSIS [None]
  - ARTHRALGIA [None]
  - ARTHRITIS [None]
  - ASTHMA [None]
  - BLOOD CHOLESTEROL INCREASED [None]
  - BLOOD TRIGLYCERIDES INCREASED [None]
  - CARDIAC DISORDER [None]
  - CARDIOMEGALY [None]
  - CARDIOMYOPATHY [None]
  - CARTILAGE NEOPLASM [None]
  - CHEST PAIN [None]
  - CHOLELITHIASIS [None]
  - CORONARY ARTERY DISEASE [None]
  - DEPRESSION [None]
  - DIARRHOEA [None]
  - DIZZINESS [None]
  - DRY SKIN [None]
  - DYSPNOEA [None]
  - ELECTROCARDIOGRAM ST-T SEGMENT ABNORMAL [None]
  - FATIGUE [None]
  - HAEMOGLOBIN DECREASED [None]
  - HEADACHE [None]
  - HEART INJURY [None]
  - HIDRADENITIS [None]
  - HYPERHIDROSIS [None]
  - HYPERTENSION [None]
  - HYPOAESTHESIA [None]
  - HYPOTENSION [None]
  - LEFT ATRIAL DILATATION [None]
  - LEFT VENTRICULAR HYPERTROPHY [None]
  - MITRAL VALVE INCOMPETENCE [None]
  - MYALGIA [None]
  - MYOCARDIAL INFARCTION [None]
  - MYOCARDIAL ISCHAEMIA [None]
  - PANIC ATTACK [None]
  - SLEEP APNOEA SYNDROME [None]
  - SYNCOPE [None]
  - TACHYCARDIA [None]
  - VISUAL IMPAIRMENT [None]
  - VOMITING [None]
